FAERS Safety Report 25550098 (Version 1)
Quarter: 2025Q3

REPORT INFORMATION
  Report Type: Spontaneous
  Country: EU (occurrence: EU)
  Receive Date: 20250714
  Receipt Date: 20250714
  Transmission Date: 20251020
  Serious: Yes (Other)
  Sender: MYLAN
  Company Number: EU-Accord-170582

PATIENT
  Age: 18 Year
  Sex: Male

DRUGS (40)
  1. LEVETIRACETAM [Suspect]
     Active Substance: LEVETIRACETAM
     Indication: Epilepsy
     Dosage: 1600 MG, QD (REDUCED TO FROM 1600 MG TO 1200 MG (AT A REDUCED DOSE OF LEVETIRACETAM TO 1000 MG/DAY))
     Dates: start: 2017, end: 201806
  2. LEVETIRACETAM [Suspect]
     Active Substance: LEVETIRACETAM
     Indication: Idiopathic generalised epilepsy
     Dosage: 1600 MG, QD (REDUCED TO FROM 1600 MG TO 1200 MG (AT A REDUCED DOSE OF LEVETIRACETAM TO 1000 MG/DAY))
     Dates: start: 2017, end: 201806
  3. LEVETIRACETAM [Suspect]
     Active Substance: LEVETIRACETAM
     Dosage: 1600 MG, QD (REDUCED TO FROM 1600 MG TO 1200 MG (AT A REDUCED DOSE OF LEVETIRACETAM TO 1000 MG/DAY))
     Route: 065
     Dates: start: 2017, end: 201806
  4. LEVETIRACETAM [Suspect]
     Active Substance: LEVETIRACETAM
     Dosage: 1600 MG, QD (REDUCED TO FROM 1600 MG TO 1200 MG (AT A REDUCED DOSE OF LEVETIRACETAM TO 1000 MG/DAY))
     Route: 065
     Dates: start: 2017, end: 201806
  5. LEVETIRACETAM [Suspect]
     Active Substance: LEVETIRACETAM
     Dosage: 1200 MILLIGRAM, QD (DAILY)
     Dates: start: 2017
  6. LEVETIRACETAM [Suspect]
     Active Substance: LEVETIRACETAM
     Dosage: 1200 MILLIGRAM, QD (DAILY)
     Dates: start: 2017
  7. LEVETIRACETAM [Suspect]
     Active Substance: LEVETIRACETAM
     Dosage: 1200 MILLIGRAM, QD (DAILY)
     Route: 065
     Dates: start: 2017
  8. LEVETIRACETAM [Suspect]
     Active Substance: LEVETIRACETAM
     Dosage: 1200 MILLIGRAM, QD (DAILY)
     Route: 065
     Dates: start: 2017
  9. LEVETIRACETAM [Suspect]
     Active Substance: LEVETIRACETAM
     Dosage: 100 MILLIGRAM, QD (DAILY)
     Dates: start: 2017
  10. LEVETIRACETAM [Suspect]
     Active Substance: LEVETIRACETAM
     Dosage: 100 MILLIGRAM, QD (DAILY)
     Route: 065
     Dates: start: 2017
  11. LEVETIRACETAM [Suspect]
     Active Substance: LEVETIRACETAM
     Dosage: 100 MILLIGRAM, QD (DAILY)
     Dates: start: 2017
  12. LEVETIRACETAM [Suspect]
     Active Substance: LEVETIRACETAM
     Dosage: 100 MILLIGRAM, QD (DAILY)
     Route: 065
     Dates: start: 2017
  13. LEVETIRACETAM [Suspect]
     Active Substance: LEVETIRACETAM
     Dosage: 1200 MILLIGRAM, QD (ONCE A DAY (DOSE GRADUALLY REDUCED))
     Dates: start: 2018
  14. LEVETIRACETAM [Suspect]
     Active Substance: LEVETIRACETAM
     Dosage: 1200 MILLIGRAM, QD (ONCE A DAY (DOSE GRADUALLY REDUCED))
     Dates: start: 2018
  15. LEVETIRACETAM [Suspect]
     Active Substance: LEVETIRACETAM
     Dosage: 1200 MILLIGRAM, QD (ONCE A DAY (DOSE GRADUALLY REDUCED))
     Route: 065
     Dates: start: 2018
  16. LEVETIRACETAM [Suspect]
     Active Substance: LEVETIRACETAM
     Dosage: 1200 MILLIGRAM, QD (ONCE A DAY (DOSE GRADUALLY REDUCED))
     Route: 065
     Dates: start: 2018
  17. LEVETIRACETAM [Suspect]
     Active Substance: LEVETIRACETAM
     Dosage: 1 DAY GRADUAL REDUCTION IN THE TOTAL DAILY DOSE FROM 1,600MG TO 1,200MG
     Dates: start: 201806, end: 201807
  18. LEVETIRACETAM [Suspect]
     Active Substance: LEVETIRACETAM
     Dosage: 1 DAY GRADUAL REDUCTION IN THE TOTAL DAILY DOSE FROM 1,600MG TO 1,200MG
     Dates: start: 201806, end: 201807
  19. LEVETIRACETAM [Suspect]
     Active Substance: LEVETIRACETAM
     Dosage: 1 DAY GRADUAL REDUCTION IN THE TOTAL DAILY DOSE FROM 1,600MG TO 1,200MG
     Route: 065
     Dates: start: 201806, end: 201807
  20. LEVETIRACETAM [Suspect]
     Active Substance: LEVETIRACETAM
     Dosage: 1 DAY GRADUAL REDUCTION IN THE TOTAL DAILY DOSE FROM 1,600MG TO 1,200MG
     Route: 065
     Dates: start: 201806, end: 201807
  21. LEVETIRACETAM [Suspect]
     Active Substance: LEVETIRACETAM
     Dosage: 1200 MILLIGRAM, QD (ONCE A DAY)
     Dates: start: 201806, end: 201901
  22. LEVETIRACETAM [Suspect]
     Active Substance: LEVETIRACETAM
     Dosage: 1200 MILLIGRAM, QD (ONCE A DAY)
     Dates: start: 201806, end: 201901
  23. LEVETIRACETAM [Suspect]
     Active Substance: LEVETIRACETAM
     Dosage: 1200 MILLIGRAM, QD (ONCE A DAY)
     Route: 065
     Dates: start: 201806, end: 201901
  24. LEVETIRACETAM [Suspect]
     Active Substance: LEVETIRACETAM
     Dosage: 1200 MILLIGRAM, QD (ONCE A DAY)
     Route: 065
     Dates: start: 201806, end: 201901
  25. LEVETIRACETAM [Suspect]
     Active Substance: LEVETIRACETAM
     Dosage: 1000 MILLIGRAM, QD (DAILY)
     Dates: start: 201901
  26. LEVETIRACETAM [Suspect]
     Active Substance: LEVETIRACETAM
     Dosage: 1000 MILLIGRAM, QD (DAILY)
     Dates: start: 201901
  27. LEVETIRACETAM [Suspect]
     Active Substance: LEVETIRACETAM
     Dosage: 1000 MILLIGRAM, QD (DAILY)
     Route: 065
     Dates: start: 201901
  28. LEVETIRACETAM [Suspect]
     Active Substance: LEVETIRACETAM
     Dosage: 1000 MILLIGRAM, QD (DAILY)
     Route: 065
     Dates: start: 201901
  29. VALPROATE SODIUM [Suspect]
     Active Substance: VALPROATE SODIUM
     Indication: Epilepsy
  30. VALPROATE SODIUM [Suspect]
     Active Substance: VALPROATE SODIUM
     Indication: Idiopathic generalised epilepsy
     Route: 065
  31. VALPROATE SODIUM [Suspect]
     Active Substance: VALPROATE SODIUM
     Route: 065
  32. VALPROATE SODIUM [Suspect]
     Active Substance: VALPROATE SODIUM
  33. RISPERIDONE [Suspect]
     Active Substance: RISPERIDONE
     Indication: Aggression
     Dosage: 0.75 MILLIGRAM, QD (ONCE A DAY IN 2 DIVIDED DOSES)
     Dates: start: 2017
  34. RISPERIDONE [Suspect]
     Active Substance: RISPERIDONE
     Dosage: 0.75 MILLIGRAM, QD (ONCE A DAY IN 2 DIVIDED DOSES)
     Route: 065
     Dates: start: 2017
  35. RISPERIDONE [Suspect]
     Active Substance: RISPERIDONE
     Dosage: 0.75 MILLIGRAM, QD (ONCE A DAY IN 2 DIVIDED DOSES)
     Route: 065
     Dates: start: 2017
  36. RISPERIDONE [Suspect]
     Active Substance: RISPERIDONE
     Dosage: 0.75 MILLIGRAM, QD (ONCE A DAY IN 2 DIVIDED DOSES)
     Dates: start: 2017
  37. HYDROXYZINE [Suspect]
     Active Substance: HYDROXYZINE HYDROCHLORIDE
     Indication: Aggression
     Dosage: 60 MILLIGRAM, QD (ONCE A DAY, IN 3 DIVIDED DOSES)
     Dates: start: 2017
  38. HYDROXYZINE [Suspect]
     Active Substance: HYDROXYZINE HYDROCHLORIDE
     Dosage: 60 MILLIGRAM, QD (ONCE A DAY, IN 3 DIVIDED DOSES)
     Route: 065
     Dates: start: 2017
  39. HYDROXYZINE [Suspect]
     Active Substance: HYDROXYZINE HYDROCHLORIDE
     Dosage: 60 MILLIGRAM, QD (ONCE A DAY, IN 3 DIVIDED DOSES)
     Route: 065
     Dates: start: 2017
  40. HYDROXYZINE [Suspect]
     Active Substance: HYDROXYZINE HYDROCHLORIDE
     Dosage: 60 MILLIGRAM, QD (ONCE A DAY, IN 3 DIVIDED DOSES)
     Dates: start: 2017

REACTIONS (4)
  - Hypersexuality [Recovering/Resolving]
  - Aggression [Recovering/Resolving]
  - Sexual dysfunction [Recovering/Resolving]
  - Drug ineffective [Unknown]

NARRATIVE: CASE EVENT DATE: 20170101
